FAERS Safety Report 7434816-4 (Version None)
Quarter: 2011Q2

REPORT INFORMATION
  Report Type: 
  Country: None (occurrence: None)
  Receive Date: 20110425
  Receipt Date: 20110419
  Transmission Date: 20111010
  Serious: Yes (Hospitalization)
  Sender: FDA-Public Use
  Company Number: US-PFIZER INC-2011071572

PATIENT
  Sex: Female

DRUGS (12)
  1. VITAMIN D [Concomitant]
     Dosage: 800 IU Q
     Route: 048
  2. CHAPSTICK CLASSIC [Concomitant]
     Dosage: UNK, AS NEEDED
  3. MULTI-VITAMINS [Concomitant]
     Dosage: T TAB Q 1700
  4. HALDOL [Concomitant]
     Dosage: 5 MG, IM AS NEEDED
     Route: 030
  5. GEODON [Suspect]
     Indication: SCHIZOPHRENIA
     Dosage: 240 MG QHS
     Route: 048
     Dates: start: 20101215
  6. CARBAMAZEPINE [Concomitant]
     Dosage: 400 MG, 1X/DAY AT BED TIME
     Route: 048
     Dates: start: 20110201
  7. ACETAMINOPHEN [Concomitant]
     Dosage: 650 MG  Q6 AS NEEDED
  8. FERROUS SULFATE [Concomitant]
     Dosage: 325 MG, UNK
     Route: 048
  9. LOVAZA [Concomitant]
     Dosage: 2000 MG, 2X/DAY
     Route: 048
  10. VITAMIN E [Concomitant]
     Dosage: 100 U, 2X/DAY WITH FOOD
  11. CARBAMAZEPINE [Concomitant]
     Dosage: 200MG ORALLY 0700 AND 400MG QHS
     Route: 048
     Dates: start: 20110201
  12. BIOTENE [Concomitant]
     Dosage: 15 ML, 3X/DAY AS NEEDED

REACTIONS (3)
  - SEDATION [None]
  - SOMNOLENCE [None]
  - PSYCHOTIC DISORDER [None]
